FAERS Safety Report 8172600 (Version 6)
Quarter: 2013Q2

REPORT INFORMATION
  Report Type: Report from Study
  Country: DE (occurrence: DE)
  Receive Date: 20111007
  Receipt Date: 20130409
  Transmission Date: 20140414
  Serious: Yes (Hospitalization)
  Sender: FDA-Public Use
  Company Number: DE-CELGENEUS-062-C5013-11092975

PATIENT
  Age: 48 Year
  Sex: Male
  Weight: 78.5 kg

DRUGS (8)
  1. CC-5013 [Suspect]
     Indication: CHRONIC LYMPHOCYTIC LEUKAEMIA
     Dosage: 15 MILLIGRAM
     Route: 048
     Dates: start: 20110920, end: 20110922
  2. CC-5013 [Suspect]
     Dosage: 10 MILLIGRAM
     Route: 048
     Dates: start: 20110930, end: 20111004
  3. CC-5013 [Suspect]
     Dosage: SAME DOSE
     Route: 048
     Dates: start: 20111007, end: 20111016
  4. CC-5013 [Suspect]
     Route: 048
     Dates: start: 20111018, end: 20111018
  5. ASS [Concomitant]
     Indication: THROMBOSIS PROPHYLAXIS
     Dosage: 100 MILLIGRAM
     Route: 048
     Dates: start: 20110920
  6. ALLOPURINOL [Concomitant]
     Indication: HYPERCALCAEMIA
     Dosage: 300 MILLIGRAM
     Route: 048
     Dates: start: 20110917, end: 20111018
  7. PANTOPRAZOLE [Concomitant]
     Indication: PROPHYLAXIS
     Dosage: 40 MILLIGRAM
     Route: 048
     Dates: end: 20111018
  8. CEFUROXIME [Concomitant]
     Indication: INFECTION PROPHYLAXIS
     Dosage: 200 MILLIGRAM
     Route: 048
     Dates: start: 20111011, end: 20111018

REACTIONS (6)
  - Hypercalcaemia [Recovered/Resolved]
  - Tumour flare [Recovered/Resolved]
  - Tumour flare [Recovered/Resolved]
  - Tumour lysis syndrome [Recovered/Resolved]
  - Renal failure acute [Recovered/Resolved]
  - Pneumonia [Recovered/Resolved]
